FAERS Safety Report 19430323 (Version 1)
Quarter: 2021Q2

REPORT INFORMATION
  Report Type: Spontaneous
  Country: US (occurrence: US)
  Receive Date: 20210617
  Receipt Date: 20210617
  Transmission Date: 20210717
  Serious: Yes (Hospitalization, Other)
  Sender: FDA-Public Use
  Company Number: US-ACCORD-194731

PATIENT
  Age: 73 Year
  Sex: Male

DRUGS (1)
  1. CAPECITABINE. [Suspect]
     Active Substance: CAPECITABINE
     Indication: PANCREATIC CARCINOMA
     Dosage: TWICE A DAY, DAY 1?14
     Route: 048
     Dates: start: 20200626

REACTIONS (2)
  - Abdominal pain [Unknown]
  - Dysphagia [Recovered/Resolved]

NARRATIVE: CASE EVENT DATE: 20200720
